FAERS Safety Report 16482213 (Version 1)
Quarter: 2019Q2

REPORT INFORMATION
  Report Type: Spontaneous
  Country: KR (occurrence: KR)
  Receive Date: 20190627
  Receipt Date: 20190627
  Transmission Date: 20190711
  Serious: Yes (Death, Other)
  Sender: FDA-Public Use
  Company Number: KR-009507513-1906KOR009226

PATIENT
  Sex: Female

DRUGS (5)
  1. IRCODON [Concomitant]
     Active Substance: OXYCODONE HYDROCHLORIDE
     Dosage: QUANTITY 3, DAYS 25
     Route: 048
     Dates: start: 20190514
  2. TARGIN [Concomitant]
     Active Substance: NALOXONE HYDROCHLORIDE\OXYCODONE HYDROCHLORIDE
     Dosage: QUANTITY 2, DAYS 25
     Route: 048
     Dates: start: 20190514
  3. KEYTRUDA [Suspect]
     Active Substance: PEMBROLIZUMAB
     Indication: CHOLANGIOCARCINOMA
     Dosage: QUANTITY2, DAYS 1
     Dates: start: 20190514
  4. SODIUM CHLORIDE. [Concomitant]
     Active Substance: SODIUM CHLORIDE
     Dosage: 100ML; QUANTITY 1, DAYS1
     Dates: start: 20190514
  5. SODIUM CHLORIDE. [Concomitant]
     Active Substance: SODIUM CHLORIDE
     Dosage: 50ML; QUANTITY 1, DAYS 1
     Dates: start: 20190514

REACTIONS (4)
  - Cardio-respiratory arrest [Fatal]
  - Multiple organ dysfunction syndrome [Fatal]
  - Malignant neoplasm progression [Fatal]
  - Product use in unapproved indication [Unknown]

NARRATIVE: CASE EVENT DATE: 20190514
